FAERS Safety Report 6449545-3 (Version None)
Quarter: 2009Q4

REPORT INFORMATION
  Report Type: 
  Country: None (occurrence: None)
  Receive Date: 20091120
  Receipt Date: 20091113
  Transmission Date: 20100525
  Serious: Yes (Death)
  Sender: FDA-Public Use
  Company Number: US-ABBOTT-09P-163-0605414-00

PATIENT
  Sex: Male
  Weight: 74.91 kg

DRUGS (6)
  1. LUPRON DEPOT [Suspect]
     Indication: PROSTATE CANCER
  2. LISINOPRIL [Concomitant]
     Indication: HYPERTENSION
  3. BACTRIM [Concomitant]
     Indication: INFECTION
  4. LEVAQUIN [Concomitant]
     Indication: INFECTION
  5. ZOMETA [Concomitant]
     Indication: BONE DEVELOPMENT ABNORMAL
  6. PREDNISONE [Concomitant]
     Indication: DRUG USE FOR UNKNOWN INDICATION

REACTIONS (4)
  - ASTHENIA [None]
  - CONFUSIONAL STATE [None]
  - PROSTATE CANCER METASTATIC [None]
  - RESTLESSNESS [None]
